FAERS Safety Report 14417127 (Version 1)
Quarter: 2018Q1

REPORT INFORMATION
  Report Type: Spontaneous
  Country: US (occurrence: US)
  Receive Date: 20180122
  Receipt Date: 20180122
  Transmission Date: 20180509
  Serious: No
  Sender: FDA-Public Use
  Company Number: US-PFIZER INC-2018025789

PATIENT
  Age: 75 Year
  Sex: Female

DRUGS (2)
  1. IBRANCE [Suspect]
     Active Substance: PALBOCICLIB
     Dosage: UNK UNK, CYCLIC
     Dates: start: 2017
  2. LETROZOLE. [Suspect]
     Active Substance: LETROZOLE
     Dosage: UNK UNK, CYCLIC
     Dates: start: 2017

REACTIONS (1)
  - Alopecia [Unknown]
